FAERS Safety Report 9995948 (Version 1)
Quarter: 2014Q1

REPORT INFORMATION
  Report Type: Spontaneous
  Country: US (occurrence: None)
  Receive Date: 20140310
  Receipt Date: 20140310
  Transmission Date: 20141002
  Serious: Yes (Disabling)
  Sender: FDA-Public Use
  Company Number: None

PATIENT
  Age: 66 Year
  Sex: Male
  Weight: 77.11 kg

DRUGS (1)
  1. RABEPRAZOLE [Suspect]
     Indication: GASTROOESOPHAGEAL REFLUX DISEASE
     Dosage: 1 DOSE TWICE DAILY TAKEN BY MOUTH
     Route: 048
     Dates: start: 20140110, end: 20140210

REACTIONS (2)
  - Hypertension [None]
  - Product substitution issue [None]
